FAERS Safety Report 23712639 (Version 2)
Quarter: 2024Q2

REPORT INFORMATION
  Report Type: Spontaneous
  Country: US (occurrence: US)
  Receive Date: 20240405
  Receipt Date: 20240522
  Transmission Date: 20240716
  Serious: Yes (Other)
  Sender: FDA-Public Use
  Company Number: US-PFIZER INC-202400075762

PATIENT
  Age: 40 Year
  Sex: Male
  Weight: 62.132 kg

DRUGS (1)
  1. XYNTHA [Suspect]
     Active Substance: ANTIHEMOPHILIC FACTOR, HUMAN RECOMBINANT RESIDUES 743-1636 DELETED
     Indication: Haemarthrosis
     Dosage: 2000 UNITS (+/-10%) DAILY AS NEEDED
     Route: 042

REACTIONS (1)
  - Drug ineffective [Unknown]
